FAERS Safety Report 8528193 (Version 2)
Quarter: 2013Q1

REPORT INFORMATION
  Report Type: Spontaneous
  Country: CA (occurrence: CA)
  Receive Date: 20120424
  Receipt Date: 20130313
  Transmission Date: 20140127
  Serious: Yes (Other)
  Sender: FDA-Public Use
  Company Number: CA-ELI_LILLY_AND_COMPANY-CA201204003500

PATIENT
  Age: 77 Year
  Sex: Female
  Weight: 68 kg

DRUGS (7)
  1. CYMBALTA [Suspect]
     Indication: BACK PAIN
     Dosage: 60 MG, QD
     Route: 048
     Dates: start: 20111215
  2. ATENOL [Concomitant]
     Dosage: 50 MG, QD
     Route: 048
  3. LOSEC [Concomitant]
     Dosage: 20 MG, BID
  4. TIAZAC                             /00489702/ [Concomitant]
     Dosage: 180 MG, QD
  5. METFORMIN [Concomitant]
     Dosage: 500 MG, BID
  6. THYROXINE [Concomitant]
     Dosage: 112 MG, QD
  7. ZOCOR [Concomitant]
     Dosage: 40 MG, QD

REACTIONS (10)
  - Drug hypersensitivity [Unknown]
  - Swelling [Unknown]
  - Abdominal discomfort [Unknown]
  - Disorientation [Unknown]
  - Dizziness [Unknown]
  - Flatulence [Unknown]
  - Gastrooesophageal reflux disease [Unknown]
  - Vision blurred [Unknown]
  - Vomiting [Unknown]
  - Dysuria [Unknown]
